FAERS Safety Report 13634811 (Version 2)
Quarter: 2017Q2

REPORT INFORMATION
  Report Type: Report from Study
  Country: US (occurrence: US)
  Receive Date: 20170609
  Receipt Date: 20170613
  Transmission Date: 20170830
  Serious: Yes (Death)
  Sender: FDA-Public Use
  Company Number: US-ROCHE-1947178

PATIENT
  Age: 75 Year
  Sex: Female

DRUGS (5)
  1. COTELLIC [Suspect]
     Active Substance: COBIMETINIB
     Indication: MALIGNANT MELANOMA
     Dosage: DAILY FOR 21 CONSECUTIVE DAYS ON,FOLLWOED BY A 7-DAY REST PERIOD.
     Route: 065
  2. ZELBORAF [Suspect]
     Active Substance: VEMURAFENIB
     Indication: METASTASES TO LIVER
  3. ZELBORAF [Suspect]
     Active Substance: VEMURAFENIB
     Indication: CHOLANGIOCARCINOMA
  4. ZELBORAF [Suspect]
     Active Substance: VEMURAFENIB
     Indication: METASTASES TO PLEURA
  5. ZELBORAF [Suspect]
     Active Substance: VEMURAFENIB
     Indication: MALIGNANT MELANOMA
     Route: 065

REACTIONS (1)
  - Death [Fatal]

NARRATIVE: CASE EVENT DATE: 20170602
